FAERS Safety Report 25771817 (Version 1)
Quarter: 2025Q3

REPORT INFORMATION
  Report Type: Spontaneous
  Country: US (occurrence: US)
  Receive Date: 20250908
  Receipt Date: 20250908
  Transmission Date: 20251021
  Serious: No
  Sender: AMGEN
  Company Number: US-AMGEN-USASP2025175264

PATIENT
  Age: 75 Year
  Sex: Female

DRUGS (2)
  1. REPATHA [Suspect]
     Active Substance: EVOLOCUMAB
     Indication: Blood cholesterol abnormal
     Dosage: 140 MILLIGRAM, Q2WK
     Route: 058
     Dates: start: 20250701
  2. EZETIMIBE [Concomitant]
     Active Substance: EZETIMIBE
     Indication: Blood cholesterol abnormal
     Route: 065
     Dates: start: 202504, end: 202507

REACTIONS (5)
  - Injection site haemorrhage [Unknown]
  - Injection site pain [Unknown]
  - Injury associated with device [Unknown]
  - Wrong technique in product usage process [Unknown]
  - Incorrect dose administered by device [Unknown]

NARRATIVE: CASE EVENT DATE: 20250901
